FAERS Safety Report 7310116-8 (Version None)
Quarter: 2011Q1

REPORT INFORMATION
  Report Type: 
  Country: None (occurrence: None)
  Receive Date: 20110224
  Receipt Date: 20110217
  Transmission Date: 20110831
  Serious: No
  Sender: FDA-Public Use
  Company Number: US-PFIZER INC-2011035767

PATIENT
  Sex: Female

DRUGS (2)
  1. ESTRING [Suspect]
     Indication: MENOPAUSE
  2. ESTRING [Suspect]
     Indication: VULVOVAGINAL DRYNESS
     Dosage: UNK
     Dates: start: 20110201

REACTIONS (1)
  - DRUG INEFFECTIVE [None]
